FAERS Safety Report 8453283-5 (Version None)
Quarter: 2012Q2

REPORT INFORMATION
  Report Type: 
  Country: None (occurrence: None)
  Receive Date: 20120620
  Receipt Date: 20120511
  Transmission Date: 20120825
  Serious: No
  Sender: FDA-Public Use
  Company Number: US-VERTEX PHARMACEUTICALS INC.-AE-2012-006980

PATIENT
  Sex: Female
  Weight: 119.86 kg

DRUGS (4)
  1. RIBAVIRIN [Concomitant]
     Indication: HEPATITIS C
     Dates: start: 20120501
  2. INCIVEK [Suspect]
     Indication: HEPATITIS C
     Route: 048
     Dates: start: 20120501
  3. PEGASYS [Concomitant]
     Indication: HEPATITIS C
     Route: 058
     Dates: start: 20120501
  4. LISINOPRIL [Concomitant]

REACTIONS (8)
  - DIZZINESS [None]
  - NAUSEA [None]
  - FATIGUE [None]
  - WEIGHT DECREASED [None]
  - DYSPNOEA [None]
  - PRURITUS [None]
  - VOMITING [None]
  - FAECES DISCOLOURED [None]
